FAERS Safety Report 5139317-4 (Version None)
Quarter: 2006Q4

REPORT INFORMATION
  Report Type: 
  Country: None (occurrence: None)
  Receive Date: 20061024
  Receipt Date: 20061011
  Transmission Date: 20070319
  Serious: Yes (Other)
  Sender: FDA-Public Use
  Company Number: 229752

PATIENT
  Sex: Female

DRUGS (3)
  1. PULMOZYME [Suspect]
     Indication: CYSTIC FIBROSIS
     Dosage: QD,
     Dates: start: 20050301
  2. PULMICORT [Concomitant]
  3. XOPENEX [Concomitant]

REACTIONS (2)
  - TRACHEOSTOMY [None]
  - TRACHEOSTOMY INFECTION [None]
